FAERS Safety Report 5154776-9 (Version None)
Quarter: 2006Q4

REPORT INFORMATION
  Report Type: 
  Country: None (occurrence: None)
  Receive Date: 20061115
  Receipt Date: 20061115
  Transmission Date: 20070319
  Serious: No
  Sender: FDA-Public Use
  Company Number: None

PATIENT
  Age: 41 Year
  Sex: Male
  Weight: 89.3586 kg

DRUGS (2)
  1. EFAVIRENZ [Suspect]
     Indication: RETROVIRAL INFECTION
     Dosage: 600 MG  1 TAB QHS  PO
     Route: 048
     Dates: start: 20060622, end: 20060907
  2. LOPINAVIR/RITONOVIR    200MG/50 MG [Suspect]
     Indication: RETROVIRAL INFECTION
     Dosage: 200 MG/50 MG   2 TABS BID  PO
     Route: 048
     Dates: start: 20060907, end: 20061005

REACTIONS (2)
  - DIARRHOEA [None]
  - RASH PRURITIC [None]
